FAERS Safety Report 7744660-6 (Version None)
Quarter: 2011Q3

REPORT INFORMATION
  Report Type: 
  Country: None (occurrence: None)
  Receive Date: 20110912
  Receipt Date: 20110906
  Transmission Date: 20111222
  Serious: Yes (Other)
  Sender: FDA-Public Use
  Company Number: PHEH2011US02209

PATIENT
  Sex: Female

DRUGS (5)
  1. GILENYA [Suspect]
     Dosage: 0.5 MG, QD
     Route: 048
  2. COREG [Concomitant]
     Dosage: 25 MG, BID
     Route: 048
  3. TRIAMTERENE AND HYDROCHLOROTHIAZIDE [Concomitant]
     Dosage: 1 DF, QD
     Route: 048
  4. GILENYA [Suspect]
     Indication: RELAPSING-REMITTING MULTIPLE SCLEROSIS
     Dosage: 0.5 MG, QD
     Route: 048
     Dates: start: 20110812, end: 20110815
  5. NORVASC [Concomitant]
     Dosage: 10 MG, QD

REACTIONS (3)
  - DIZZINESS [None]
  - HEART RATE DECREASED [None]
  - BLOOD PRESSURE DECREASED [None]
